FAERS Safety Report 4392644-0 (Version None)
Quarter: 2004Q3

REPORT INFORMATION
  Report Type: 
  Country: None (occurrence: None)
  Receive Date: 20040708
  Receipt Date: 20040625
  Transmission Date: 20050211
  Serious: Yes (Other)
  Sender: FDA-Public Use
  Company Number: PHEH2004US06921

PATIENT
  Age: 48 Year
  Sex: Female

DRUGS (3)
  1. TRILEPTAL [Suspect]
     Indication: AFFECTIVE DISORDER
     Dosage: 450 MG, QHS
     Route: 048
     Dates: start: 20040501
  2. WELLBUTRIN [Concomitant]
  3. TRANSENE [Concomitant]

REACTIONS (7)
  - CONDITION AGGRAVATED [None]
  - DIPLOPIA [None]
  - DYSKINESIA [None]
  - DYSPHAGIA [None]
  - HYPOACUSIS [None]
  - ORAL PAIN [None]
  - VISUAL ACUITY REDUCED [None]
